FAERS Safety Report 19399827 (Version 1)
Quarter: 2021Q2

REPORT INFORMATION
  Report Type: Spontaneous
  Country: FR (occurrence: FR)
  Receive Date: 20210610
  Receipt Date: 20210610
  Transmission Date: 20210717
  Serious: Yes (Disabling)
  Sender: FDA-Public Use
  Company Number: FR-VER-202100094

PATIENT
  Age: 70 Year
  Sex: Male

DRUGS (1)
  1. TRIPTORELIN [Suspect]
     Active Substance: TRIPTORELIN
     Indication: PROSTATE CANCER
     Route: 065
     Dates: start: 2017, end: 2017

REACTIONS (1)
  - Retinitis pigmentosa [Not Recovered/Not Resolved]

NARRATIVE: CASE EVENT DATE: 2018
